FAERS Safety Report 7902961-2 (Version None)
Quarter: 2011Q4

REPORT INFORMATION
  Report Type: 
  Country: None (occurrence: None)
  Receive Date: 20111107
  Receipt Date: 20111021
  Transmission Date: 20120403
  Serious: Yes (Hospitalization)
  Sender: FDA-Public Use
  Company Number: 2011MA013469

PATIENT
  Age: 29 Year
  Sex: Female

DRUGS (3)
  1. LEVOLEUCOVORIN CALCIUM [Suspect]
     Indication: RECTAL CANCER STAGE IV
     Dates: start: 20050501, end: 20050801
  2. IRINOTECAN HYDROCHLORIDE [Suspect]
     Indication: RECTAL CANCER STAGE IV
     Dates: start: 20050501, end: 20050801
  3. FLUOROURACIL [Suspect]
     Indication: RECTAL CANCER STAGE IV
     Dates: start: 20050501, end: 20050801

REACTIONS (4)
  - THERAPEUTIC RESPONSE DECREASED [None]
  - INTERSTITIAL LUNG DISEASE [None]
  - NEUROPATHY PERIPHERAL [None]
  - ERYTHEMA [None]
